FAERS Safety Report 19580438 (Version 1)
Quarter: 2021Q3

REPORT INFORMATION
  Report Type: Spontaneous
  Country: US (occurrence: US)
  Receive Date: 20210719
  Receipt Date: 20210719
  Transmission Date: 20211014
  Serious: No
  Sender: FDA-Public Use
  Company Number: US-NOVOPROD-793722

PATIENT
  Sex: Male

DRUGS (2)
  1. OZEMPIC [Suspect]
     Active Substance: SEMAGLUTIDE
     Dosage: 0.5 MG
     Route: 058
  2. OZEMPIC [Suspect]
     Active Substance: SEMAGLUTIDE
     Indication: PRODUCT USED FOR UNKNOWN INDICATION
     Dosage: 0.25 MG
     Route: 058

REACTIONS (6)
  - Extra dose administered [Unknown]
  - Visual impairment [Not Recovered/Not Resolved]
  - Post-traumatic stress disorder [Unknown]
  - Malaise [Unknown]
  - Wrong technique in product usage process [Unknown]
  - Blood glucose increased [Unknown]
